FAERS Safety Report 10951077 (Version 1)
Quarter: 2015Q1

REPORT INFORMATION
  Report Type: Spontaneous
  Country: US (occurrence: None)
  Receive Date: 20150226
  Receipt Date: 20150226
  Transmission Date: 20150721
  Serious: Yes (Hospitalization)
  Sender: FDA-Public Use
  Company Number: TAP2008Q00941

PATIENT
  Age: 57 Year
  Sex: Female
  Weight: 90.9 kg

DRUGS (19)
  1. GABAPENTIN. [Concomitant]
     Active Substance: GABAPENTIN
  2. LIPITOR [Concomitant]
     Active Substance: ATORVASTATIN CALCIUM
  3. AVALIDE (HYDROCHLOROTHIAZIDE, IRBESARTAN) [Concomitant]
  4. ZOMIG (ZOLMITRIPTAN) [Concomitant]
  5. SPIRIVA (TIOTROPTIUM BROMIDE) [Concomitant]
  6. FUROSEMIDE. [Concomitant]
     Active Substance: FUROSEMIDE
  7. POTASSIUM [Concomitant]
     Active Substance: POTASSIUM
  8. ADVAIR DISKUS [Concomitant]
     Active Substance: FLUTICASONE PROPIONATE\SALMETEROL XINAFOATE
  9. CELEBREX [Concomitant]
     Active Substance: CELECOXIB
  10. AMITRIPTYLINE [Concomitant]
     Active Substance: AMITRIPTYLINE
  11. LEXAPRO [Concomitant]
     Active Substance: ESCITALOPRAM OXALATE
  12. ESTRATEST (METHYLTESTOSTERONE, ESTROGENS ESTERIFIED) [Concomitant]
  13. PREVACID [Suspect]
     Active Substance: LANSOPRAZOLE
     Indication: GASTROOESOPHAGEAL REFLUX DISEASE
     Dates: end: 200807
  14. COPAXONE [Concomitant]
     Active Substance: GLATIRAMER ACETATE
  15. SINGULAIR [Concomitant]
     Active Substance: MONTELUKAST SODIUM
  16. ALPJAN EYE DROP (BRIMONIDINE TARTRATE) [Concomitant]
  17. ESTRADIOL. [Concomitant]
     Active Substance: ESTRADIOL
  18. AMANTADINE [Concomitant]
     Active Substance: AMANTADINE
  19. FEXOFENADINE [Concomitant]
     Active Substance: FEXOFENADINE\FEXOFENADINE HYDROCHLORIDE

REACTIONS (1)
  - Asthma [None]
